FAERS Safety Report 8170014-7 (Version None)
Quarter: 2012Q1

REPORT INFORMATION
  Report Type: 
  Country: None (occurrence: None)
  Receive Date: 20120105
  Receipt Date: 20110505
  Transmission Date: 20120608
  Serious: Yes (Hospitalization)
  Sender: FDA-Public Use
  Company Number: US-006220

PATIENT
  Age: 62 Year
  Sex: Female

DRUGS (4)
  1. PROHANCE [Suspect]
     Indication: MASS
     Dosage: 15ML ONCE INTRAVENOUS (NOT OTHERWISE SPECIFIED)
     Route: 042
     Dates: start: 20110503, end: 20110503
  2. PROHANCE [Suspect]
     Indication: NUCLEAR MAGNETIC RESONANCE IMAGING
     Dosage: 15ML ONCE INTRAVENOUS (NOT OTHERWISE SPECIFIED)
     Route: 042
     Dates: start: 20110503, end: 20110503
  3. NORVASC [Concomitant]
  4. VASOTEC [Concomitant]

REACTIONS (1)
  - ANAPHYLACTIC REACTION [None]
